FAERS Safety Report 4691863-3 (Version None)
Quarter: 2005Q2

REPORT INFORMATION
  Report Type: 
  Country: None (occurrence: None)
  Receive Date: 20050615
  Receipt Date: 20050615
  Transmission Date: 20051028
  Serious: Yes (Hospitalization)
  Sender: FDA-Public Use
  Company Number: None

PATIENT
  Age: 44 Year
  Sex: Male
  Weight: 108.8633 kg

DRUGS (1)
  1. SEROQUEL [Suspect]
     Indication: DRUG DEPENDENCE
     Dosage: 50 MG TID 200 MG HS
     Dates: start: 20050125

REACTIONS (2)
  - DEPRESSION [None]
  - OVERDOSE [None]
